FAERS Safety Report 5311857-4 (Version None)
Quarter: 2007Q2

REPORT INFORMATION
  Report Type: 
  Country: None (occurrence: None)
  Receive Date: 20070427
  Receipt Date: 20070427
  Transmission Date: 20071010
  Serious: No
  Sender: FDA-Public Use
  Company Number: None

PATIENT
  Age: 33 Year
  Sex: Female
  Weight: 65.7716 kg

DRUGS (3)
  1. ZELNORM [Suspect]
     Indication: CONSTIPATION
     Dosage: 1-2  DAILY  PO
     Route: 048
     Dates: start: 20051101, end: 20070420
  2. ZELNORM [Suspect]
     Indication: IRRITABLE BOWEL SYNDROME
     Dosage: 1-2  DAILY  PO
     Route: 048
     Dates: start: 20051101, end: 20070420
  3. ZELNORM [Suspect]

REACTIONS (3)
  - ARTHRITIS [None]
  - CHEST PAIN [None]
  - INSOMNIA [None]
